FAERS Safety Report 8319828-0 (Version None)
Quarter: 2012Q1

REPORT INFORMATION
  Report Type: 
  Country: None (occurrence: None)
  Receive Date: 20120315
  Receipt Date: 20110308
  Transmission Date: 20120608
  Serious: Yes (Other)
  Sender: FDA-Public Use
  Company Number: PHHY2011US11485

PATIENT
  Age: 49 Year
  Sex: Female
  Weight: 116.1 kg

DRUGS (7)
  1. ZOLOFT [Concomitant]
  2. MIRALAX [Concomitant]
  3. TOPAMAX [Concomitant]
  4. ZANAFLEX [Concomitant]
  5. MOTRIN [Concomitant]
  6. CLONAZEPAM [Concomitant]
  7. GILENYA [Suspect]
     Indication: MULTIPLE SCLEROSIS
     Dosage: 0.5 MG, DAILY, ORAL
     Route: 048
     Dates: start: 20110203

REACTIONS (3)
  - HEADACHE [None]
  - FATIGUE [None]
  - HEART RATE DECREASED [None]
